FAERS Safety Report 12784340 (Version 1)
Quarter: 2016Q3

REPORT INFORMATION
  Report Type: Spontaneous
  Country: DE (occurrence: DE)
  Receive Date: 20160927
  Receipt Date: 20160927
  Transmission Date: 20161109
  Serious: Yes (Death, Hospitalization, Other)
  Sender: FDA-Public Use
  Company Number: DE-BEH-SAGL/01/37/GFR

PATIENT
  Age: 5 Year
  Sex: Female
  Weight: 18.8 kg

DRUGS (13)
  1. ZANTAC [Concomitant]
     Active Substance: RANITIDINE HYDROCHLORIDE
     Dates: start: 20010824, end: 20010824
  2. TUTOFUSIN [Concomitant]
     Route: 042
     Dates: start: 20010821, end: 20010824
  3. PARACETAMOL [Concomitant]
     Active Substance: ACETAMINOPHEN
     Dates: start: 20010823, end: 20010824
  4. PIPRIL [Concomitant]
     Active Substance: PIPERACILLIN SODIUM
     Dates: start: 20010823, end: 20010826
  5. CLONT [Concomitant]
     Dates: start: 20010822, end: 20010823
  6. ASPISOL [Concomitant]
     Active Substance: ASPIRIN LYSINE
     Dates: start: 20010823, end: 20010826
  7. VOLTAREN [Concomitant]
     Active Substance: DICLOFENAC SODIUM
     Dates: start: 20010823, end: 20010824
  8. CERTOMYCIN [Concomitant]
     Dates: start: 20010823, end: 20010827
  9. SPIZEF [Concomitant]
     Dates: start: 20010822, end: 20010823
  10. GERNEBCIN [Concomitant]
     Dates: start: 200108, end: 20010827
  11. SANDOGLOBULIN [Suspect]
     Active Substance: HUMAN IMMUNOGLOBULIN G
     Indication: KAWASAKI^S DISEASE
     Dosage: DAILY DOSE QUANTITY: 90, DAILY DOSE UNIT: ML
     Route: 042
     Dates: start: 20010824, end: 20010824
  12. AMINOPAED [Concomitant]
     Active Substance: AMINO ACIDS
     Route: 042
     Dates: start: 20010822, end: 20010824
  13. DIPIDOLOR [Concomitant]
     Active Substance: PIRITRAMIDE
     Dates: start: 20010822, end: 20010823

REACTIONS (8)
  - Hypotension [Unknown]
  - Cardiac arrest [Unknown]
  - Hypoxic-ischaemic encephalopathy [Unknown]
  - Anaphylactic reaction [Fatal]
  - Brain oedema [Unknown]
  - Chills [Unknown]
  - Pulmonary oedema [Unknown]
  - Dyspnoea [Unknown]

NARRATIVE: CASE EVENT DATE: 20010824
